FAERS Safety Report 6909241-2 (Version None)
Quarter: 2010Q3

REPORT INFORMATION
  Report Type: 
  Country: None (occurrence: None)
  Receive Date: 20100805
  Receipt Date: 20100726
  Transmission Date: 20110219
  Serious: Yes (Other)
  Sender: FDA-Public Use
  Company Number: JP-JNJFOC-20100708994

PATIENT
  Sex: Female

DRUGS (13)
  1. FINIBAX [Suspect]
     Indication: SEPSIS
     Route: 041
  2. AMPHOTERICIN B [Suspect]
     Indication: SEPSIS
     Route: 041
  3. CYLOCIDE [Concomitant]
  4. METHOTREXATE [Concomitant]
  5. METHOTREXATE [Concomitant]
  6. METHOTREXATE [Concomitant]
  7. METHOTREXATE [Concomitant]
  8. METHOTREXATE [Concomitant]
  9. PREDONINE [Concomitant]
  10. PREDONINE [Concomitant]
  11. PREDONINE [Concomitant]
  12. PREDONINE [Concomitant]
  13. PREDONINE [Concomitant]

REACTIONS (1)
  - BLOOD POTASSIUM DECREASED [None]
